FAERS Safety Report 13680294 (Version 1)
Quarter: 2017Q2

REPORT INFORMATION
  Report Type: Spontaneous
  Country: IT (occurrence: IT)
  Receive Date: 20170622
  Receipt Date: 20170622
  Transmission Date: 20170830
  Serious: Yes (Hospitalization, Other)
  Sender: FDA-Public Use
  Company Number: IT-ASTRAZENECA-2017SE63927

PATIENT
  Sex: Male

DRUGS (2)
  1. BARACLUDE [Concomitant]
     Active Substance: ENTECAVIR
  2. TAGRISSO [Suspect]
     Active Substance: OSIMERTINIB
     Indication: NON-SMALL CELL LUNG CANCER
     Route: 048
     Dates: start: 20170224, end: 20170616

REACTIONS (4)
  - Condition aggravated [Unknown]
  - Malignant neoplasm progression [Unknown]
  - Sepsis [Unknown]
  - Pathological fracture [Unknown]
